FAERS Safety Report 5568455-7 (Version None)
Quarter: 2007Q4

REPORT INFORMATION
  Report Type: 
  Country: None (occurrence: None)
  Receive Date: 20071220
  Receipt Date: 20071214
  Transmission Date: 20080405
  Serious: Yes (Hospitalization)
  Sender: FDA-Public Use
  Company Number: GB-AVENTIS-200714623GDDC

PATIENT
  Age: 29 Year
  Sex: Female
  Weight: 76 kg

DRUGS (4)
  1. LANTUS [Suspect]
     Route: 058
     Dates: start: 20031217
  2. ACTRAPID [Concomitant]
     Route: 058
     Dates: start: 19910320
  3. CYCLIZINE [Concomitant]
     Indication: NAUSEA
     Route: 048
     Dates: start: 20050330, end: 20050501
  4. GLUCOGEN [Concomitant]
     Route: 030
     Dates: start: 20050101

REACTIONS (3)
  - DRUG EXPOSURE DURING PREGNANCY [None]
  - PREMATURE RUPTURE OF MEMBRANES [None]
  - VAGINAL HAEMORRHAGE [None]
